FAERS Safety Report 8052900-1 (Version None)
Quarter: 2012Q1

REPORT INFORMATION
  Report Type: 
  Country: None (occurrence: None)
  Receive Date: 20120118
  Receipt Date: 20120111
  Transmission Date: 20120608
  Serious: Yes (Other)
  Sender: FDA-Public Use
  Company Number: GB-JNJFOC-20120105775

PATIENT
  Age: 53 Year
  Sex: Male

DRUGS (1)
  1. SPORANOX [Suspect]
     Indication: SEBORRHOEIC DERMATITIS
     Route: 048

REACTIONS (1)
  - BURSITIS [None]
